FAERS Safety Report 4864471-9 (Version None)
Quarter: 2005Q4

REPORT INFORMATION
  Report Type: 
  Country: None (occurrence: None)
  Receive Date: 20051222
  Receipt Date: 20051213
  Transmission Date: 20060501
  Serious: Yes (Other)
  Sender: FDA-Public Use
  Company Number: DE-ABBOTT-05P-062-0320347-00

PATIENT
  Age: 49 Year
  Sex: Female

DRUGS (8)
  1. ULTIVA [Suspect]
     Indication: ANAESTHESIA
     Dosage: BOLUS
     Route: 042
  2. ULTIVA [Suspect]
     Dosage: CONTINUOUS INFUSION
     Route: 042
  3. ULTIVA [Suspect]
     Dosage: AFTER SKIN INCISION
     Route: 042
  4. ULTIVA [Suspect]
     Route: 042
  5. PROPOFOL [Suspect]
     Indication: ANAESTHESIA
     Dosage: BOLUS
     Route: 042
  6. PROPOFOL [Suspect]
     Dosage: CONTINUOUS INFUSION
     Route: 042
  7. PROPOFOL [Suspect]
     Dosage: AFTER SKIN INCISION
     Route: 042
  8. PROPOFOL [Suspect]
     Dosage: CONTINUOUS INFUSION
     Route: 042

REACTIONS (3)
  - HEART RATE INCREASED [None]
  - PAIN [None]
  - UNWANTED AWARENESS DURING ANAESTHESIA [None]
